FAERS Safety Report 4442758-1 (Version None)
Quarter: 2004Q3

REPORT INFORMATION
  Report Type: 
  Country: None (occurrence: None)
  Receive Date: 20040903
  Receipt Date: 20040614
  Transmission Date: 20050211
  Serious: Yes (Other)
  Sender: FDA-Public Use
  Company Number: 2004UW12301

PATIENT
  Age: 83 Year
  Sex: Male
  Weight: 85.7298 kg

DRUGS (3)
  1. CRESTOR [Suspect]
     Indication: BLOOD CHOLESTEROL INCREASED
     Dosage: 10 MG
  2. GLYBURIDE [Concomitant]
  3. INSULIN [Concomitant]

REACTIONS (1)
  - DIFFICULTY IN WALKING [None]
